FAERS Safety Report 4376891-X (Version None)
Quarter: 2004Q2

REPORT INFORMATION
  Report Type: 
  Country: None (occurrence: None)
  Receive Date: 20040608
  Receipt Date: 20030513
  Transmission Date: 20050107
  Serious: Yes (Other)
  Sender: FDA-Public Use
  Company Number: 200311616BCC

PATIENT
  Age: 51 Year
  Sex: Female
  Weight: 90.2658 kg

DRUGS (4)
  1. ALEVE [Suspect]
     Indication: HEADACHE
     Dosage: 440 MG, QD, ORAL
     Route: 048
     Dates: start: 20030423
  2. HIGH BLOOD PRESSURE MEDICATION [Concomitant]
  3. NEXIUM [Concomitant]
  4. CHLOR-TRIMETON [Concomitant]

REACTIONS (3)
  - DYSPNOEA [None]
  - HYPERSENSITIVITY [None]
  - URTICARIA [None]
